FAERS Safety Report 21479017 (Version 1)
Quarter: 2022Q4

REPORT INFORMATION
  Report Type: Report from Study
  Country: US (occurrence: US)
  Receive Date: 20221019
  Receipt Date: 20221019
  Transmission Date: 20230112
  Serious: Yes (Death)
  Sender: FDA-Public Use
  Company Number: US-JNJFOC-20220821639

PATIENT
  Age: 1 Year
  Sex: Male
  Weight: 6.810 kg

DRUGS (2)
  1. TRACLEER [Suspect]
     Active Substance: BOSENTAN
     Indication: Product used for unknown indication
     Dosage: TRACLEER DOSE TAKE ONE HALF TABLET BY MOUTH TWICE DAILY ORALLY
     Route: 048
     Dates: start: 20220418
  2. SILDENAFIL CITRATE [Concomitant]
     Active Substance: SILDENAFIL CITRATE

REACTIONS (4)
  - Death [Fatal]
  - Pulmonary arterial pressure increased [Unknown]
  - Liver function test abnormal [Unknown]
  - Off label use [Unknown]
